FAERS Safety Report 6702778-0 (Version None)
Quarter: 2010Q2

REPORT INFORMATION
  Report Type: 
  Country: None (occurrence: None)
  Receive Date: 20100429
  Receipt Date: 20100419
  Transmission Date: 20101027
  Serious: Yes (Other)
  Sender: FDA-Public Use
  Company Number: NL-ELI_LILLY_AND_COMPANY-NL201002006464

PATIENT
  Sex: Female
  Weight: 89 kg

DRUGS (2)
  1. FORTEO [Suspect]
     Indication: OSTEOPOROSIS
     Dosage: 20 UG, UNK
     Route: 058
     Dates: start: 20100209, end: 20100404
  2. COZAAR [Concomitant]
     Indication: BLOOD PRESSURE INCREASED
     Dosage: 50 UG, DAILY (1/D)
     Route: 048
     Dates: start: 20000101

REACTIONS (8)
  - BRONCHITIS [None]
  - DIZZINESS [None]
  - HEART RATE IRREGULAR [None]
  - INFLUENZA [None]
  - MOOD ALTERED [None]
  - NASOPHARYNGITIS [None]
  - PNEUMONITIS [None]
  - SINUSITIS [None]
